FAERS Safety Report 9217427 (Version 4)
Quarter: 2013Q4

REPORT INFORMATION
  Report Type: Spontaneous
  Country: US (occurrence: US)
  Receive Date: 20130408
  Receipt Date: 20131127
  Transmission Date: 20140711
  Serious: Yes (Hospitalization, Disabling, Other)
  Sender: FDA-Public Use
  Company Number: US-009507513-1303USA014357

PATIENT
  Sex: Female
  Weight: 85.71 kg

DRUGS (14)
  1. FOSAMAX [Suspect]
     Indication: OSTEOPOROSIS PROPHYLAXIS
     Dosage: 70 MG, QW
     Route: 048
     Dates: start: 20050713
  2. FOSAMAX [Suspect]
     Indication: OSTEOPENIA
  3. ALENDRONATE SODIUM [Suspect]
     Indication: OSTEOPENIA
     Dosage: 70 MG, UNK
     Route: 048
     Dates: start: 20080329, end: 201009
  4. PAXIL [Concomitant]
     Indication: ANXIETY
     Dosage: UNK
     Dates: start: 2004
  5. PAXIL [Concomitant]
     Indication: DEPRESSION
  6. PAROXETINE HYDROCHLORIDE [Concomitant]
     Indication: ANXIETY
     Dosage: 30 - 60 MG QD
     Route: 048
     Dates: start: 2004
  7. PAROXETINE HYDROCHLORIDE [Concomitant]
     Indication: DEPRESSION
  8. METHYLPHENIDATE [Concomitant]
     Indication: ANXIETY
     Dosage: UNK
     Dates: start: 2004
  9. METHYLPHENIDATE [Concomitant]
     Indication: DEPRESSION
  10. VITAMINS (UNSPECIFIED) [Concomitant]
     Dosage: 1-2 TAB QD
     Route: 048
     Dates: start: 2000
  11. CALCIUM (UNSPECIFIED) [Concomitant]
     Dosage: 500 MG, QD
     Dates: start: 2000
  12. VITAMIN D (UNSPECIFIED) [Concomitant]
     Dosage: 5000 IU, QIW
     Dates: start: 2000
  13. VITAMIN D (UNSPECIFIED) [Concomitant]
     Dosage: 10000 IU, TIW
     Dates: start: 2000
  14. HORMONES (UNSPECIFIED) [Concomitant]
     Dosage: UNK
     Dates: start: 1992

REACTIONS (18)
  - Femur fracture [Not Recovered/Not Resolved]
  - Intramedullary rod insertion [Unknown]
  - Patella fracture [Unknown]
  - Open reduction of fracture [Unknown]
  - Rotator cuff repair [Unknown]
  - Rotator cuff repair [Unknown]
  - Anxiety [Not Recovered/Not Resolved]
  - Depression [Not Recovered/Not Resolved]
  - Glaucoma [Unknown]
  - Bacterial disease carrier [Unknown]
  - Carpal tunnel decompression [Unknown]
  - Finger repair operation [Unknown]
  - Adverse event [Unknown]
  - Osteoporosis [Unknown]
  - Arthralgia [Unknown]
  - Treatment failure [Unknown]
  - Coccydynia [Unknown]
  - Osteoarthritis [Unknown]
